FAERS Safety Report 5199936-6 (Version None)
Quarter: 2007Q1

REPORT INFORMATION
  Report Type: 
  Country: None (occurrence: None)
  Receive Date: 20070103
  Receipt Date: 20061222
  Transmission Date: 20070707
  Serious: Yes (Other)
  Sender: FDA-Public Use
  Company Number: 234145

PATIENT
  Age: 9 Year
  Sex: Male
  Weight: 23.6 kg

DRUGS (1)
  1. NUTROPIN AQ [Suspect]
     Indication: GROWTH RETARDATION
     Dosage: 0.6 MG, QD, SUBCUTANEOUS
     Route: 058
     Dates: start: 20061029, end: 20061113

REACTIONS (1)
  - HEADACHE [None]
